FAERS Safety Report 22843074 (Version 6)
Quarter: 2024Q1

REPORT INFORMATION
  Report Type: Spontaneous
  Country: ES (occurrence: ES)
  Receive Date: 20230821
  Receipt Date: 20240221
  Transmission Date: 20240410
  Serious: Yes (Hospitalization, Other)
  Sender: FDA-Public Use
  Company Number: ES-Accord-373595

PATIENT
  Age: 49 Year
  Sex: Male
  Weight: 72.0 kg

DRUGS (13)
  1. CISPLATIN [Suspect]
     Active Substance: CISPLATIN
     Indication: Head and neck cancer stage IV
     Dosage: 1Q3W
     Route: 042
     Dates: start: 20230704, end: 20230704
  2. FLUOROURACIL [Suspect]
     Active Substance: FLUOROURACIL
     Indication: Head and neck cancer stage IV
     Route: 042
     Dates: start: 20230704, end: 20230708
  3. APREPITANT [Concomitant]
     Active Substance: APREPITANT
     Dates: start: 20230704
  4. FLUTICASONE FUROATE [Concomitant]
     Active Substance: FLUTICASONE FUROATE
  5. CASPOFUNGIN [Concomitant]
     Active Substance: CASPOFUNGIN
     Dates: start: 20230720, end: 20230802
  6. CETIRIZINE [Concomitant]
     Active Substance: CETIRIZINE HYDROCHLORIDE
  7. DEXAMETHASONE [Concomitant]
     Active Substance: DEXAMETHASONE
     Dates: start: 20230704
  8. FLUCONAZOLE [Concomitant]
     Active Substance: FLUCONAZOLE
     Dates: start: 20230714, end: 20230719
  9. LINEZOLID [Concomitant]
     Active Substance: LINEZOLID
     Dates: start: 20230714, end: 20230719
  10. METOCLOPRAMIDE [Concomitant]
     Active Substance: METOCLOPRAMIDE
     Dates: start: 20230712, end: 20230807
  11. ONDANSETRON [Concomitant]
     Active Substance: ONDANSETRON
     Dates: start: 20230704
  12. PEMBROLIZUMAB [Concomitant]
     Active Substance: PEMBROLIZUMAB
     Indication: Head and neck cancer stage IV
     Dosage: 1Q3W
     Route: 042
     Dates: start: 20230704, end: 20230704
  13. TIGECYCLINE [Concomitant]
     Active Substance: TIGECYCLINE
     Dates: start: 20230720, end: 20230802

REACTIONS (5)
  - Febrile neutropenia [Recovered/Resolved]
  - Haemophagocytic lymphohistiocytosis [Recovered/Resolved with Sequelae]
  - Enterocolitis [Unknown]
  - Herpes oesophagitis [Recovered/Resolved]
  - Pancytopenia [Unknown]

NARRATIVE: CASE EVENT DATE: 20230701
